FAERS Safety Report 13634982 (Version 1)
Quarter: 2017Q2

REPORT INFORMATION
  Report Type: Spontaneous
  Country: US (occurrence: US)
  Receive Date: 20170531
  Receipt Date: 20170531
  Transmission Date: 20170830
  Serious: No
  Sender: FDA-Public Use
  Company Number: US-ASTELLAS-1674802

PATIENT
  Age: 63 Year
  Sex: Male

DRUGS (9)
  1. TARCEVA [Suspect]
     Active Substance: ERLOTINIB HYDROCHLORIDE
     Indication: HYPOTHYROIDISM
     Route: 048
     Dates: start: 201511
  2. TYLENOL [Concomitant]
     Active Substance: ACETAMINOPHEN
     Route: 065
     Dates: start: 20151130
  3. ONDANSETRON [Concomitant]
     Active Substance: ONDANSETRON
     Route: 065
     Dates: start: 20151130
  4. LEVOTHYROXIN [Concomitant]
     Active Substance: LEVOTHYROXINE
     Route: 065
     Dates: start: 20151130
  5. SIMVASTATIN. [Concomitant]
     Active Substance: SIMVASTATIN
     Route: 065
     Dates: start: 20151130
  6. LEVETIRACETAM. [Concomitant]
     Active Substance: LEVETIRACETAM
     Route: 065
     Dates: start: 20151130
  7. LORAZEPAM. [Concomitant]
     Active Substance: LORAZEPAM
     Route: 065
     Dates: start: 20151130
  8. LISINOPRIL. [Concomitant]
     Active Substance: LISINOPRIL
     Route: 065
     Dates: start: 20151130
  9. ZOLPIDEM [Concomitant]
     Active Substance: ZOLPIDEM\ZOLPIDEM TARTRATE
     Route: 065
     Dates: start: 20151130

REACTIONS (3)
  - Rash [Not Recovered/Not Resolved]
  - Dry eye [Not Recovered/Not Resolved]
  - Nausea [Not Recovered/Not Resolved]

NARRATIVE: CASE EVENT DATE: 201511
